FAERS Safety Report 13500178 (Version 2)
Quarter: 2017Q3

REPORT INFORMATION
  Report Type: Spontaneous
  Country: US (occurrence: US)
  Receive Date: 20170501
  Receipt Date: 20170911
  Transmission Date: 20171127
  Serious: No
  Sender: FDA-Public Use
  Company Number: US-SHIRE-US201709424

PATIENT
  Sex: Female

DRUGS (3)
  1. XIIDRA [Suspect]
     Active Substance: LIFITEGRAST
     Indication: DRY EYE
     Dosage: 1 GTT IN EACH EYE, 2X/DAY:BID
     Route: 047
  2. XIIDRA [Suspect]
     Active Substance: LIFITEGRAST
     Dosage: 1 GTT, 2X/DAY:BID
  3. DOXYCYCLINE. [Concomitant]
     Active Substance: DOXYCYCLINE
     Indication: PRODUCT USED FOR UNKNOWN INDICATION

REACTIONS (18)
  - Hordeolum [Recovered/Resolved]
  - Ocular discomfort [Recovered/Resolved]
  - Eyelid pain [Recovering/Resolving]
  - Eye irritation [Unknown]
  - Instillation site reaction [Unknown]
  - Erythema of eyelid [Recovering/Resolving]
  - Hyperaemia [Unknown]
  - Blepharitis [Recovered/Resolved]
  - Ocular hyperaemia [Not Recovered/Not Resolved]
  - Vision blurred [Unknown]
  - Instillation site discharge [Unknown]
  - Condition aggravated [Recovered/Resolved]
  - Drug dose omission [Recovered/Resolved]
  - Eye discharge [Unknown]
  - Instillation site pain [Not Recovered/Not Resolved]
  - Eye ulcer [Recovered/Resolved]
  - Instillation site irritation [Unknown]
  - Instillation site pruritus [Unknown]

NARRATIVE: CASE EVENT DATE: 2017
